FAERS Safety Report 25763237 (Version 1)
Quarter: 2025Q3

REPORT INFORMATION
  Report Type: Spontaneous
  Country: EU (occurrence: EU)
  Receive Date: 20250905
  Receipt Date: 20250905
  Transmission Date: 20251020
  Serious: Yes (Other)
  Sender: GLAXOSMITHKLINE
  Company Number: None

PATIENT
  Sex: Female

DRUGS (3)
  1. SUMATRIPTAN SUCCINATE [Suspect]
     Active Substance: SUMATRIPTAN SUCCINATE
     Indication: Cluster headache
     Route: 065
  2. INDOMETHACIN [Suspect]
     Active Substance: INDOMETHACIN
     Indication: Headache
     Route: 065
  3. ELETRIPTAN [Suspect]
     Active Substance: ELETRIPTAN
     Indication: Cluster headache
     Route: 065

REACTIONS (3)
  - Drug abuse [Unknown]
  - Drug ineffective for unapproved indication [Unknown]
  - Medication overuse headache [Unknown]
